FAERS Safety Report 25765829 (Version 1)
Quarter: 2025Q3

REPORT INFORMATION
  Report Type: Other
  Country: GB (occurrence: GB)
  Receive Date: 20250905
  Receipt Date: 20250905
  Transmission Date: 20251021
  Serious: Yes (Other)
  Sender: ZYDUS PHARM
  Company Number: GB-Accord-501244

PATIENT

DRUGS (10)
  1. AMLODIPINE [Interacting]
     Active Substance: AMLODIPINE BESYLATE
     Indication: Product used for unknown indication
     Route: 065
     Dates: end: 20250801
  2. FUROSEMIDE [Interacting]
     Active Substance: FUROSEMIDE
     Indication: Diuretic therapy
     Route: 065
     Dates: end: 20250711
  3. AMILORIDE [Interacting]
     Active Substance: AMILORIDE
     Indication: Diuretic therapy
     Route: 065
     Dates: end: 20250711
  4. QUETIAPINE [Suspect]
     Active Substance: QUETIAPINE
     Indication: Product used for unknown indication
     Route: 065
     Dates: start: 202506, end: 20250804
  5. QUININE [Concomitant]
     Active Substance: QUININE
     Indication: Muscle spasms
     Route: 065
  6. QUININE [Concomitant]
     Active Substance: QUININE
     Route: 065
  7. ATORVASTATIN CALCIUM [Concomitant]
     Active Substance: ATORVASTATIN CALCIUM
     Indication: Product used for unknown indication
     Route: 065
  8. EZETIMIBE [Concomitant]
     Active Substance: EZETIMIBE
     Indication: Product used for unknown indication
     Route: 065
  9. LANSOPRAZOLE [Concomitant]
     Active Substance: LANSOPRAZOLE
     Indication: Product used for unknown indication
     Route: 065
  10. METFORMIN [Concomitant]
     Active Substance: METFORMIN HYDROCHLORIDE
     Indication: Product used for unknown indication
     Route: 065

REACTIONS (5)
  - Hyponatraemia [Unknown]
  - Pneumonia [Unknown]
  - Transient ischaemic attack [Unknown]
  - Drug interaction [Unknown]
  - Hypotension [Recovered/Resolved]

NARRATIVE: CASE EVENT DATE: 20250101
